FAERS Safety Report 7723505-4 (Version None)
Quarter: 2011Q3

REPORT INFORMATION
  Report Type: 
  Country: None (occurrence: None)
  Receive Date: 20110901
  Receipt Date: 20110830
  Transmission Date: 20111222
  Serious: Yes (Other)
  Sender: FDA-Public Use
  Company Number: US-PFIZER INC-2011203180

PATIENT
  Age: 13 Year
  Sex: Male
  Weight: 68.9 kg

DRUGS (5)
  1. GEODON [Suspect]
     Dosage: 20 MG, UNK
     Route: 048
     Dates: start: 20040101
  2. GEODON [Suspect]
     Dosage: TWO CAPSULES OF 60MG, UNK
     Route: 048
  3. ADDERALL 5 [Concomitant]
     Indication: DISTURBANCE IN ATTENTION
     Dosage: 30 MG, DAILY IN MORNING
     Dates: start: 20030101
  4. GEODON [Suspect]
     Indication: ATTENTION DEFICIT/HYPERACTIVITY DISORDER
     Dosage: UNK
     Route: 048
     Dates: start: 20040101
  5. GEODON [Suspect]
     Dosage: UNK
     Route: 048
     Dates: start: 20040101

REACTIONS (3)
  - INSOMNIA [None]
  - DYSPNOEA [None]
  - SWOLLEN TONGUE [None]
